FAERS Safety Report 4590203-8 (Version None)
Quarter: 2005Q1

REPORT INFORMATION
  Report Type: 
  Country: None (occurrence: None)
  Receive Date: 20050224
  Receipt Date: 20050217
  Transmission Date: 20050727
  Serious: Yes (Other)
  Sender: FDA-Public Use
  Company Number: PT-BRISTOL-MYERS SQUIBB COMPANY-12869418

PATIENT
  Age: 66 Year

DRUGS (2)
  1. APROVEL TABS 150 MG [Suspect]
     Indication: HYPERTENSION
     Route: 048
     Dates: start: 20041229, end: 20050124
  2. LOSARTAN POTASSIUM [Concomitant]
     Route: 048
     Dates: start: 20041229

REACTIONS (3)
  - FACE OEDEMA [None]
  - PERIORBITAL OEDEMA [None]
  - PROSTRATION [None]
